FAERS Safety Report 6878468-0 (Version None)
Quarter: 2010Q3

REPORT INFORMATION
  Report Type: 
  Country: None (occurrence: None)
  Receive Date: 20100728
  Receipt Date: 20100721
  Transmission Date: 20110219
  Serious: Yes (Other)
  Sender: FDA-Public Use
  Company Number: US-MERCK-1007USA02544

PATIENT
  Age: 60 Year
  Sex: Male

DRUGS (2)
  1. JANUMET [Suspect]
     Route: 048
     Dates: start: 20100317
  2. ZOCOR [Suspect]
     Route: 048
     Dates: start: 20100317

REACTIONS (1)
  - THYROID CANCER [None]
